FAERS Safety Report 17756239 (Version 1)
Quarter: 2020Q2

REPORT INFORMATION
  Report Type: Spontaneous
  Country: NL (occurrence: NL)
  Receive Date: 20200507
  Receipt Date: 20200507
  Transmission Date: 20200714
  Serious: Yes (Life-Threatening, Hospitalization)
  Sender: FDA-Public Use
  Company Number: NL-BAYER-2020-073397

PATIENT
  Age: 68 Year
  Sex: Male

DRUGS (8)
  1. AMLODIPINE [Concomitant]
     Active Substance: AMLODIPINE BESYLATE
  2. CHLOROQUINE. [Suspect]
     Active Substance: CHLOROQUINE
     Indication: COVID-19
     Dosage: THEN 2DD 3 PIECES OF 100 MG
  3. PARACETAMOL [Concomitant]
     Active Substance: ACETAMINOPHEN
  4. CEFUROXIM [CEFUROXIME] [Concomitant]
     Active Substance: CEFUROXIME
     Indication: RESPIRATORY TRACT INFECTION
     Dosage: 500 MG
     Dates: start: 20200415
  5. CHLOROQUINE. [Suspect]
     Active Substance: CHLOROQUINE
     Indication: COVID-19
     Dosage: OPLAAT 600MG
     Dates: start: 20200411
  6. AMOXICILLINE [AMOXICILLIN] [Concomitant]
     Active Substance: AMOXICILLIN
     Dosage: 500 MG
  7. FENPROCOUMON [Concomitant]
     Active Substance: PHENPROCOUMON
  8. OXAZEPAM. [Concomitant]
     Active Substance: OXAZEPAM

REACTIONS (4)
  - Nausea [Unknown]
  - Suicide attempt [Not Recovered/Not Resolved]
  - Depression suicidal [Not Recovered/Not Resolved]
  - Off label use [None]

NARRATIVE: CASE EVENT DATE: 20200415
